FAERS Safety Report 16330404 (Version 1)
Quarter: 2019Q2

REPORT INFORMATION
  Report Type: Spontaneous
  Country: CN (occurrence: US)
  Receive Date: 20190520
  Receipt Date: 20190520
  Transmission Date: 20190711
  Serious: Yes (Death, Other)
  Sender: FDA-Public Use
  Company Number: US-DRREDDYS-USA/USA/19/0110219

PATIENT
  Age: 82 Year
  Sex: Male

DRUGS (3)
  1. AZACITIDINE. [Suspect]
     Active Substance: AZACITIDINE
     Dosage: RE-INITIATED
     Route: 065
  2. DECITABINE. [Suspect]
     Active Substance: DECITABINE
     Indication: PRODUCT USED FOR UNKNOWN INDICATION
     Route: 065
  3. AZACITIDINE. [Suspect]
     Active Substance: AZACITIDINE
     Indication: MYELODYSPLASTIC SYNDROME
     Dosage: 2 CYCLES
     Route: 065

REACTIONS (6)
  - Rhinovirus infection [Unknown]
  - Death [Fatal]
  - Acute myeloid leukaemia [Unknown]
  - Febrile neutropenia [Unknown]
  - Enterovirus infection [Unknown]
  - Platelet count increased [Unknown]
